FAERS Safety Report 7325523-7 (Version None)
Quarter: 2011Q1

REPORT INFORMATION
  Report Type: 
  Country: None (occurrence: None)
  Receive Date: 20110302
  Receipt Date: 20110218
  Transmission Date: 20110831
  Serious: Yes (Other)
  Sender: FDA-Public Use
  Company Number: US-ELI_LILLY_AND_COMPANY-US201102005874

PATIENT
  Sex: Female

DRUGS (2)
  1. LANTUS [Concomitant]
     Indication: TYPE 1 DIABETES MELLITUS
  2. HUMALOG [Suspect]
     Indication: TYPE 1 DIABETES MELLITUS
     Dosage: 3 U, AS NEEDED
     Route: 065
     Dates: start: 20010101

REACTIONS (5)
  - MYOCARDIAL INFARCTION [None]
  - IMMUNISATION REACTION [None]
  - GENERAL PHYSICAL HEALTH DETERIORATION [None]
  - BLOOD PRESSURE INCREASED [None]
  - VENOUS INSUFFICIENCY [None]
